FAERS Safety Report 15277901 (Version 1)
Quarter: 2018Q3

REPORT INFORMATION
  Report Type: Spontaneous
  Country: US (occurrence: US)
  Receive Date: 20180814
  Receipt Date: 20180814
  Transmission Date: 20181010
  Serious: No
  Sender: FDA-Public Use
  Company Number: US-BAYER-2018-148066

PATIENT
  Age: 16 Year
  Sex: Female

DRUGS (1)
  1. LOTRIMIN ULTRA ANTIFUNGAL [Suspect]
     Active Substance: BUTENAFINE HYDROCHLORIDE
     Indication: FUNGAL INFECTION
     Dosage: UNK
     Route: 048
     Dates: start: 20180805, end: 20180805

REACTIONS (1)
  - Exposure via partner [Recovered/Resolved]

NARRATIVE: CASE EVENT DATE: 20180805
